FAERS Safety Report 4568320-8 (Version None)
Quarter: 2005Q1

REPORT INFORMATION
  Report Type: 
  Country: None (occurrence: None)
  Receive Date: 20050202
  Receipt Date: 20050125
  Transmission Date: 20050727
  Serious: Yes (Other)
  Sender: FDA-Public Use
  Company Number: SE-SANOFI-SYNTHELABO-A01200500466

PATIENT
  Sex: Female

DRUGS (3)
  1. LEUCOVORIN [Concomitant]
     Dosage: UNK
     Route: 065
  2. FLUOROURACIL [Concomitant]
     Dosage: UNK
     Route: 065
  3. ELOXATIN [Suspect]
     Dosage: UNK
     Route: 042

REACTIONS (2)
  - BLINDNESS TRANSIENT [None]
  - VISUAL FIELD DEFECT [None]
